FAERS Safety Report 19589542 (Version 1)
Quarter: 2021Q3

REPORT INFORMATION
  Report Type: Report from Study
  Country: US (occurrence: US)
  Receive Date: 20210721
  Receipt Date: 20210721
  Transmission Date: 20211014
  Serious: Yes (Hospitalization)
  Sender: FDA-Public Use
  Company Number: US-BIOGEN-2021BI01013557

PATIENT
  Age: 60 Year
  Sex: Female

DRUGS (52)
  1. LANTUS [Concomitant]
     Active Substance: INSULIN GLARGINE
     Route: 065
  2. METHOTREXATE. [Concomitant]
     Active Substance: METHOTREXATE
     Route: 065
  3. NITROGLYCERIN. [Concomitant]
     Active Substance: NITROGLYCERIN
     Route: 065
  4. LEVOTHYROXINE SODIUM. [Concomitant]
     Active Substance: LEVOTHYROXINE SODIUM
     Route: 065
  5. XOLAIR [Concomitant]
     Active Substance: OMALIZUMAB
     Route: 065
  6. AVONEX [Suspect]
     Active Substance: INTERFERON BETA-1A
  7. AVONEX [Suspect]
     Active Substance: INTERFERON BETA-1A
  8. TOPIRAMATE. [Concomitant]
     Active Substance: TOPIRAMATE
     Route: 065
  9. BUDESONIDE. [Concomitant]
     Active Substance: BUDESONIDE
     Route: 065
  10. FLONASE [Concomitant]
     Active Substance: FLUTICASONE PROPIONATE
     Route: 065
  11. ISOSORBIDE MONONITRATE. [Concomitant]
     Active Substance: ISOSORBIDE MONONITRATE
     Route: 065
  12. VUMERITY [Suspect]
     Active Substance: DIROXIMEL FUMARATE
     Dosage: FOR THE FIRST 7 DAYS
     Route: 048
  13. AVONEX [Suspect]
     Active Substance: INTERFERON BETA-1A
  14. ROSUVASTATIN CALCIUM. [Concomitant]
     Active Substance: ROSUVASTATIN CALCIUM
     Route: 065
  15. CETIRIZINE HCL [Concomitant]
     Active Substance: CETIRIZINE HYDROCHLORIDE
     Route: 065
  16. EPINEPHRINE. [Concomitant]
     Active Substance: EPINEPHRINE
     Route: 065
  17. VUMERITY [Suspect]
     Active Substance: DIROXIMEL FUMARATE
     Route: 048
     Dates: start: 20210504
  18. AVONEX [Suspect]
     Active Substance: INTERFERON BETA-1A
  19. ACETAMINOPHEN. [Concomitant]
     Active Substance: ACETAMINOPHEN
     Route: 065
  20. ONDANSETRON HCL [Concomitant]
     Active Substance: ONDANSETRON HYDROCHLORIDE
     Route: 065
  21. BACLOFEN. [Concomitant]
     Active Substance: BACLOFEN
     Route: 065
  22. TRAMADOL HCL [Concomitant]
     Active Substance: TRAMADOL HYDROCHLORIDE
     Route: 065
  23. VUMERITY [Suspect]
     Active Substance: DIROXIMEL FUMARATE
     Route: 048
  24. AVONEX [Suspect]
     Active Substance: INTERFERON BETA-1A
  25. ALBUTEROL. [Concomitant]
     Active Substance: ALBUTEROL
     Route: 065
  26. IPRATROPIUM BROMIDE. [Concomitant]
     Active Substance: IPRATROPIUM BROMIDE
     Route: 065
  27. HUMALOG [Concomitant]
     Active Substance: INSULIN LISPRO
     Route: 065
  28. LEVAQUIN [Concomitant]
     Active Substance: LEVOFLOXACIN
     Route: 065
  29. FAMOTIDINE. [Concomitant]
     Active Substance: FAMOTIDINE
     Route: 065
  30. MONTELUKAST SODIUM. [Concomitant]
     Active Substance: MONTELUKAST SODIUM
     Route: 065
  31. LIDOCAINE HCL [Concomitant]
     Active Substance: LIDOCAINE HYDROCHLORIDE
     Route: 065
  32. VUMERITY [Suspect]
     Active Substance: DIROXIMEL FUMARATE
     Route: 048
     Dates: start: 20210416
  33. AVONEX [Suspect]
     Active Substance: INTERFERON BETA-1A
  34. LYRICA [Concomitant]
     Active Substance: PREGABALIN
     Route: 065
  35. TRULICITY [Concomitant]
     Active Substance: DULAGLUTIDE
     Route: 065
  36. METOCLOPRAMIDE HCL [Concomitant]
     Active Substance: METOCLOPRAMIDE HYDROCHLORIDE
     Route: 065
  37. MYRBETRIQ [Concomitant]
     Active Substance: MIRABEGRON
     Route: 065
  38. AVONEX [Suspect]
     Active Substance: INTERFERON BETA-1A
  39. AVONEX [Suspect]
     Active Substance: INTERFERON BETA-1A
  40. PROAIR HFA [Concomitant]
     Active Substance: ALBUTEROL SULFATE
     Route: 065
  41. TORSEMIDE. [Concomitant]
     Active Substance: TORSEMIDE
     Route: 065
  42. VUMERITY [Suspect]
     Active Substance: DIROXIMEL FUMARATE
     Indication: MULTIPLE SCLEROSIS
     Route: 048
     Dates: start: 20210427, end: 20210503
  43. AVONEX [Suspect]
     Active Substance: INTERFERON BETA-1A
     Indication: MULTIPLE SCLEROSIS
     Route: 065
     Dates: start: 20041101
  44. AVONEX [Suspect]
     Active Substance: INTERFERON BETA-1A
  45. ASPIRIN EC [Concomitant]
     Active Substance: ASPIRIN
     Route: 065
  46. DILTIAZEM HCL [Concomitant]
     Active Substance: DILTIAZEM HYDROCHLORIDE
     Route: 065
  47. DOCUSATE SODIUM. [Concomitant]
     Active Substance: DOCUSATE SODIUM
     Route: 065
  48. NUCALA [Concomitant]
     Active Substance: MEPOLIZUMAB
     Route: 065
  49. AVONEX [Suspect]
     Active Substance: INTERFERON BETA-1A
  50. AVONEX [Suspect]
     Active Substance: INTERFERON BETA-1A
  51. AVONEX [Suspect]
     Active Substance: INTERFERON BETA-1A
  52. POTASSIUM CHLORIDE. [Concomitant]
     Active Substance: POTASSIUM CHLORIDE
     Route: 065

REACTIONS (13)
  - Respiratory disorder [Not Recovered/Not Resolved]
  - Chest pain [Recovered/Resolved]
  - Pulmonary mass [Not Recovered/Not Resolved]
  - Haemoptysis [Recovered/Resolved]
  - Dyspnoea [Recovered/Resolved]
  - Dyspepsia [Not Recovered/Not Resolved]
  - Rhinitis [Unknown]
  - Epistaxis [Recovered/Resolved]
  - Throat irritation [Not Recovered/Not Resolved]
  - Headache [Recovered/Resolved]
  - Abdominal discomfort [Unknown]
  - Cough [Not Recovered/Not Resolved]
  - Sinusitis [Not Recovered/Not Resolved]

NARRATIVE: CASE EVENT DATE: 202103
